FAERS Safety Report 25161885 (Version 3)
Quarter: 2025Q2

REPORT INFORMATION
  Report Type: Spontaneous
  Country: US (occurrence: US)
  Receive Date: 20250404
  Receipt Date: 20250605
  Transmission Date: 20250716
  Serious: No
  Sender: BAYER HEALTHCARE LLC
  Company Number: US-BAYER-2025A043803

PATIENT
  Age: 76 Year
  Sex: Female

DRUGS (2)
  1. ASTEPRO [Suspect]
     Active Substance: AZELASTINE HYDROCHLORIDE
     Dosage: 1 DF, QD
     Route: 055
  2. ASTEPRO ALLERGY [Suspect]
     Active Substance: AZELASTINE HYDROCHLORIDE

REACTIONS (4)
  - Ocular hyperaemia [Unknown]
  - Dry eye [Recovered/Resolved]
  - Feeling hot [None]
  - Eye swelling [None]
